FAERS Safety Report 20608576 (Version 2)
Quarter: 2022Q2

REPORT INFORMATION
  Report Type: Spontaneous
  Country: AU (occurrence: AU)
  Receive Date: 20220317
  Receipt Date: 20220427
  Transmission Date: 20220721
  Serious: Yes (Death, Other)
  Sender: FDA-Public Use
  Company Number: AU-LANTHEUS-LMI-2022-00268

PATIENT
  Age: 71 Year
  Sex: Female

DRUGS (1)
  1. DEFINITY [Suspect]
     Active Substance: PERFLUTREN
     Indication: Echocardiogram
     Dosage: UNK
     Dates: start: 20220111, end: 20220111

REACTIONS (3)
  - Multiple organ dysfunction syndrome [Fatal]
  - Left ventricular dysfunction [Unknown]
  - Hypotension [Unknown]

NARRATIVE: CASE EVENT DATE: 20220111
